FAERS Safety Report 7278434-X (Version None)
Quarter: 2011Q1

REPORT INFORMATION
  Report Type: 
  Country: None (occurrence: None)
  Receive Date: 20110207
  Receipt Date: 20110128
  Transmission Date: 20110831
  Serious: Yes (Other)
  Sender: FDA-Public Use
  Company Number: CA-PURDUE-CAN-2011-0001709

PATIENT
  Sex: Male

DRUGS (6)
  1. CANNABIS [Suspect]
     Indication: OSTEOCHONDROSIS
  2. CANNABIS [Suspect]
     Indication: NEURALGIA
  3. HYDROMORPHONE HCL [Suspect]
     Indication: PAIN
     Dosage: UNK
     Route: 048
     Dates: start: 20090101
  4. DILAUDID [Suspect]
     Indication: PAIN
     Dosage: UNK
     Dates: start: 20090101
  5. MORPHINE SULFATE [Suspect]
     Indication: PAIN
     Dosage: UNK
     Dates: start: 20090101
  6. CANNABIS [Suspect]
     Indication: NAUSEA
     Dosage: UNK

REACTIONS (2)
  - SUBSTANCE ABUSE [None]
  - GENERAL PHYSICAL HEALTH DETERIORATION [None]
